FAERS Safety Report 16000358 (Version 1)
Quarter: 2019Q1

REPORT INFORMATION
  Report Type: Spontaneous
  Country: AR (occurrence: AR)
  Receive Date: 20190225
  Receipt Date: 20190225
  Transmission Date: 20190418
  Serious: Yes (Death)
  Sender: FDA-Public Use
  Company Number: AR-PFIZER INC-2019084283

PATIENT
  Age: 54 Year
  Sex: Female

DRUGS (1)
  1. XALKORI [Suspect]
     Active Substance: CRIZOTINIB
     Indication: NON-SMALL CELL LUNG CANCER METASTATIC
     Dosage: 250 MG, UNK
     Route: 048
     Dates: start: 20181211

REACTIONS (1)
  - Death [Fatal]

NARRATIVE: CASE EVENT DATE: 20190131
